FAERS Safety Report 7296181-5 (Version None)
Quarter: 2011Q1

REPORT INFORMATION
  Report Type: 
  Country: None (occurrence: None)
  Receive Date: 20110216
  Receipt Date: 20110210
  Transmission Date: 20110831
  Serious: Yes (Other)
  Sender: FDA-Public Use
  Company Number: DE-PFIZER INC-2011029664

PATIENT
  Sex: Female

DRUGS (1)
  1. CLINDAMYCIN HCL [Suspect]
     Indication: TOOTH ABSCESS
     Dosage: 1 DF, 3X/DAY
     Route: 048

REACTIONS (3)
  - OESOPHAGEAL DISCOMFORT [None]
  - ODYNOPHAGIA [None]
  - BURNING SENSATION MUCOSAL [None]
